FAERS Safety Report 4781075-7 (Version None)
Quarter: 2005Q3

REPORT INFORMATION
  Report Type: 
  Country: None (occurrence: None)
  Receive Date: 20050928
  Receipt Date: 20050919
  Transmission Date: 20060218
  Serious: Yes (Hospitalization, Other)
  Sender: FDA-Public Use
  Company Number: FR-JNJFOC-20050703415

PATIENT
  Sex: Male

DRUGS (1)
  1. REMICADE [Suspect]
     Indication: DRUG USE FOR UNKNOWN INDICATION
     Route: 042

REACTIONS (4)
  - LYMPH NODE TUBERCULOSIS [None]
  - LYMPHADENOPATHY MEDIASTINAL [None]
  - PYREXIA [None]
  - TREATMENT NONCOMPLIANCE [None]
